FAERS Safety Report 24918479 (Version 2)
Quarter: 2025Q1

REPORT INFORMATION
  Report Type: Spontaneous
  Country: SE (occurrence: SE)
  Receive Date: 20250203
  Receipt Date: 20250303
  Transmission Date: 20250409
  Serious: Yes (Death, Other)
  Sender: BRISTOL-MYERS SQUIBB COMPANY
  Company Number: None

PATIENT
  Age: 68 Year
  Sex: Female
  Weight: 53 kg

DRUGS (6)
  1. PACLITAXEL [Suspect]
     Active Substance: PACLITAXEL
     Indication: HER2 positive breast cancer
     Dosage: 100 MG/M2 WEEKLY AT C3 OF NEOADJUVANT THERAPY DOSE: FIRST DOSE
     Route: 042
     Dates: start: 20240605, end: 20240612
  2. DOCETAXEL [Suspect]
     Active Substance: DOCETAXEL
     Indication: HER2 positive breast cancer
     Dosage: 80 MG/M2 EVERY 3 WEEKS TOGETHER WITH PHESGO DOSE: SECOND DOSE
     Route: 042
     Dates: start: 20240425, end: 20240515
  3. EPIRUBICIN [Suspect]
     Active Substance: EPIRUBICIN
     Indication: HER2 positive breast cancer
     Dosage: 75 MG/M2 EVERY 3 WEEKS DOSE: FIRST DOSE
     Route: 042
     Dates: start: 20240626, end: 20240626
  4. CYCLOPHOSPHAMIDE [Suspect]
     Active Substance: CYCLOPHOSPHAMIDE
     Indication: HER2 positive breast cancer
     Dosage: 900 MG/M2 EVERY 3 WEEKS DOSE: FIRST DOSE
     Route: 042
     Dates: start: 20240626, end: 20240626
  5. PHESGO [Suspect]
     Active Substance: HYALURONIDASE-ZZXF\PERTUZUMAB\TRASTUZUMAB
     Indication: HER2 positive breast cancer
     Route: 058
     Dates: start: 20240425, end: 20240605
  6. PHESGO [Suspect]
     Active Substance: HYALURONIDASE-ZZXF\PERTUZUMAB\TRASTUZUMAB
     Dosage: 600/600 EVERY 3 WEEKS, TOGETHER WITH DOCETAXEL AND LATER NABPAKLITAXEL DOSE: THIRD DOSE
     Route: 058

REACTIONS (4)
  - Pneumonitis [Fatal]
  - Acute respiratory distress syndrome [Fatal]
  - Off label use [Unknown]
  - Diffuse alveolar damage [Fatal]

NARRATIVE: CASE EVENT DATE: 20240710
